FAERS Safety Report 8004847-4 (Version None)
Quarter: 2011Q4

REPORT INFORMATION
  Report Type: 
  Country: None (occurrence: None)
  Receive Date: 20111223
  Receipt Date: 20111223
  Transmission Date: 20120403
  Serious: Yes (Other)
  Sender: FDA-Public Use
  Company Number: None

PATIENT
  Age: 27 Year
  Sex: Male
  Weight: 72.574 kg

DRUGS (1)
  1. SUBOXONE [Suspect]
     Indication: DRUG DEPENDENCE
     Dosage: 6MG
     Route: 060
     Dates: start: 20070107, end: 20111222

REACTIONS (8)
  - CHEST DISCOMFORT [None]
  - DIZZINESS [None]
  - PALPITATIONS [None]
  - HEART RATE IRREGULAR [None]
  - HEADACHE [None]
  - SLEEP APNOEA SYNDROME [None]
  - HYPERHIDROSIS [None]
  - DYSPNOEA [None]
